FAERS Safety Report 13828349 (Version 2)
Quarter: 2018Q1

REPORT INFORMATION
  Report Type: Spontaneous
  Country: US (occurrence: US)
  Receive Date: 20170803
  Receipt Date: 20180213
  Transmission Date: 20180508
  Serious: No
  Sender: FDA-Public Use
  Company Number: US-PFIZER INC-2016197574

PATIENT
  Age: 51 Year
  Sex: Male

DRUGS (17)
  1. LYRICA [Suspect]
     Active Substance: PREGABALIN
     Indication: DIABETIC NEUROPATHY
     Dosage: 150 MG, 3X/DAY
     Route: 048
     Dates: start: 20160728
  2. MAGNESIUM OXIDE. [Concomitant]
     Active Substance: MAGNESIUM OXIDE
     Dosage: 400 MG, 3X/DAY (EVERY 8 HOURS)
     Route: 048
     Dates: start: 20141009
  3. MIRTAZAPINE. [Concomitant]
     Active Substance: MIRTAZAPINE
     Dosage: 15 MG, DAILY (EVERY DAY BEFORE BEDTIME)
     Route: 048
     Dates: start: 20140319
  4. METFORMIN [Concomitant]
     Active Substance: METFORMIN HYDROCHLORIDE
     Dosage: 1000 MG, 2X/DAY (WITH MORNING AND EVENING MEALS)
     Route: 048
     Dates: start: 20141208
  5. GLYBURIDE. [Concomitant]
     Active Substance: GLYBURIDE
     Dosage: 10 MG, 2X/DAY (TAKE 2 TABLETS BY MOUTH WITH BREAKFAST AND DINNER)
     Route: 048
     Dates: start: 20150105
  6. OXYCODONE AND ACETAMINOPHEN [Concomitant]
     Active Substance: ACETAMINOPHEN\OXYCODONE HYDROCHLORIDE
     Dosage: 1 DF, AS NEEDED (EVERY 6 HOURS)
     Route: 048
     Dates: start: 20160728
  7. LYRICA [Suspect]
     Active Substance: PREGABALIN
     Dosage: 150 MG, 3X/DAY
     Route: 048
     Dates: start: 20161021, end: 20161102
  8. LYRICA [Suspect]
     Active Substance: PREGABALIN
     Dosage: 150 MG, 3X/DAY
     Route: 048
     Dates: start: 20161102
  9. FARXIGA [Concomitant]
     Active Substance: DAPAGLIFLOZIN PROPANEDIOL
     Dosage: 10 MG, DAILY (EVERY DAY IN THE MORNING)
     Route: 048
     Dates: start: 20141103
  10. IRON [Concomitant]
     Active Substance: IRON
     Dosage: UNK
  11. HYDROCHLOROTHIAZIDE. [Concomitant]
     Active Substance: HYDROCHLOROTHIAZIDE
     Dosage: 25 MG, DAILY
     Route: 048
     Dates: start: 20140909
  12. DULOXETINE. [Concomitant]
     Active Substance: DULOXETINE
     Dosage: 30 MG, 2X/DAY (TAKE 1 CAPSULE BY ORAL ROUTE IN AM AND PM EVERY DAY)
     Route: 048
  13. ZINC. [Concomitant]
     Active Substance: ZINC
     Dosage: UNK
  14. LOSARTAN. [Concomitant]
     Active Substance: LOSARTAN
     Dosage: 50 MG, DAILY (EVERY DAY)
     Route: 048
     Dates: start: 20141208
  15. LEVOTHYROXINE. [Concomitant]
     Active Substance: LEVOTHYROXINE
     Dosage: 75 UG, DAILY
     Route: 048
     Dates: start: 20140917
  16. SIMVASTATIN. [Concomitant]
     Active Substance: SIMVASTATIN
     Dosage: 5 MG, DAILY (EVERY DAY IN THE EVENING)
     Route: 048
     Dates: start: 20141208
  17. DULOXETINE. [Concomitant]
     Active Substance: DULOXETINE
     Dosage: 60 MG, DAILY
     Dates: start: 20160728

REACTIONS (6)
  - Skin swelling [Unknown]
  - Asthenia [Unknown]
  - Prescribed overdose [Unknown]
  - Arthralgia [Unknown]
  - Paraesthesia [Unknown]
  - Mobility decreased [Unknown]

NARRATIVE: CASE EVENT DATE: 20160728
